FAERS Safety Report 6460504-7 (Version None)
Quarter: 2009Q4

REPORT INFORMATION
  Report Type: 
  Country: None (occurrence: None)
  Receive Date: 20091130
  Receipt Date: 20091118
  Transmission Date: 20100525
  Serious: Yes (Disabling, Other)
  Sender: FDA-Public Use
  Company Number: JP-JNJFOC-20091105756

PATIENT
  Sex: Female

DRUGS (3)
  1. CRAVIT [Suspect]
     Indication: PYELONEPHRITIS ACUTE
     Route: 048
     Dates: start: 20091109, end: 20091112
  2. ANTIBIOTIC (UNSPECIFIED) [Suspect]
     Indication: DRUG USE FOR UNKNOWN INDICATION
     Route: 065
  3. MEDICON [Concomitant]
     Route: 048

REACTIONS (10)
  - ABDOMINAL PAIN UPPER [None]
  - AGITATION [None]
  - CONFUSIONAL STATE [None]
  - FALL [None]
  - HEADACHE [None]
  - HYPERKINESIA [None]
  - HYPOTENSION [None]
  - MALAISE [None]
  - PANIC DISORDER [None]
  - PSYCHIATRIC SYMPTOM [None]
